FAERS Safety Report 6058790-0 (Version None)
Quarter: 2009Q1

REPORT INFORMATION
  Report Type: 
  Country: None (occurrence: None)
  Receive Date: 20090128
  Receipt Date: 20090128
  Transmission Date: 20090719
  Serious: Yes (Hospitalization)
  Sender: FDA-Public Use
  Company Number: None

PATIENT
  Sex: Female
  Weight: 71 kg

DRUGS (2)
  1. CISPLATIN [Suspect]
     Dosage: 127 MG
     Dates: start: 20090109, end: 20090109
  2. NAVELBINE [Suspect]
     Dosage: 51 MG
     Dates: end: 20090109

REACTIONS (7)
  - BODY TEMPERATURE DECREASED [None]
  - CHEST PAIN [None]
  - DEEP VEIN THROMBOSIS [None]
  - PALLOR [None]
  - PALPITATIONS [None]
  - PULMONARY EMBOLISM [None]
  - TACHYCARDIA [None]
